FAERS Safety Report 8219505-0 (Version None)
Quarter: 2012Q1

REPORT INFORMATION
  Report Type: 
  Country: None (occurrence: None)
  Receive Date: 20120307
  Receipt Date: 20110303
  Transmission Date: 20120608
  Serious: Yes (Other)
  Sender: FDA-Public Use
  Company Number: PHHY2011US18000

PATIENT
  Sex: Female

DRUGS (13)
  1. LORAZEPAM [Concomitant]
  2. ASPIRIN [Concomitant]
  3. LUTEIN (XANTOFYL) [Concomitant]
  4. SANDOSTATIN LAR [Concomitant]
  5. AFINITOR [Suspect]
     Dosage: 5 MG, QD
  6. SYNTHROID [Concomitant]
  7. CREON (AMYLASE, LIPASE, PANCREATIN, PROTEASE) [Concomitant]
  8. CALCIUM CARBONATE [Concomitant]
  9. FLAXSEE OIL (LINUM USITATISSIMUM SEED OIL) [Concomitant]
  10. VITAMINS (NO INGREDIENTS/SUBSTANCES) [Concomitant]
  11. FISH OIL (FISH OIL) [Concomitant]
  12. LOPRESSOR [Concomitant]
  13. LORTAB [Concomitant]

REACTIONS (7)
  - GLOSSODYNIA [None]
  - ORAL DISORDER [None]
  - MOUTH ULCERATION [None]
  - NAUSEA [None]
  - DYSPHONIA [None]
  - MASTICATION DISORDER [None]
  - PAIN [None]
